FAERS Safety Report 9326114 (Version 2)
Quarter: 2013Q2

REPORT INFORMATION
  Report Type: Spontaneous
  Country: JP (occurrence: JP)
  Receive Date: 20130604
  Receipt Date: 20130627
  Transmission Date: 20140414
  Serious: Yes (Life-Threatening, Hospitalization)
  Sender: FDA-Public Use
  Company Number: JP-ELI_LILLY_AND_COMPANY-JP201303006971

PATIENT
  Age: 67 Year
  Sex: Male
  Weight: 69.2 kg

DRUGS (2)
  1. ZYPREXA [Suspect]
     Indication: BIPOLAR DISORDER
     Dosage: 15 MG, QD
     Route: 048
     Dates: start: 200703, end: 20130304
  2. TEGRETOL [Concomitant]
     Indication: PROPHYLAXIS
     Dosage: 200 MG, QD
     Route: 048
     Dates: start: 200703, end: 20130304

REACTIONS (3)
  - Rhabdomyolysis [Recovered/Resolved]
  - Platelet count decreased [Recovered/Resolved]
  - Upper respiratory tract inflammation [Unknown]
